FAERS Safety Report 20040029 (Version 1)
Quarter: 2021Q4

REPORT INFORMATION
  Report Type: Spontaneous
  Country: PL (occurrence: PL)
  Receive Date: 20211106
  Receipt Date: 20211106
  Transmission Date: 20220303
  Serious: Yes (Hospitalization, Other)
  Sender: FDA-Public Use
  Company Number: PL-NOVARTISPH-NVSC2021PL246598

PATIENT
  Age: 61 Year
  Sex: Male
  Weight: 100 kg

DRUGS (24)
  1. SACUBITRIL\VALSARTAN [Suspect]
     Active Substance: SACUBITRIL\VALSARTAN
     Indication: Product used for unknown indication
     Dosage: 100 MG, BID, (2 X 49/51 MG)
     Route: 065
     Dates: start: 201711, end: 201808
  2. SACUBITRIL\VALSARTAN [Suspect]
     Active Substance: SACUBITRIL\VALSARTAN
     Dosage: 200 MG, BID, (2 X 97/103 MG)
     Route: 065
     Dates: start: 201712
  3. SACUBITRIL\VALSARTAN [Suspect]
     Active Substance: SACUBITRIL\VALSARTAN
     Dosage: UNK
     Route: 065
     Dates: start: 201808
  4. SACUBITRIL\VALSARTAN [Suspect]
     Active Substance: SACUBITRIL\VALSARTAN
     Dosage: 100 MG, BID, (2 X 49/51 MG)
     Route: 065
     Dates: start: 201809
  5. SACUBITRIL\VALSARTAN [Suspect]
     Active Substance: SACUBITRIL\VALSARTAN
     Dosage: 200 MG, BID, (2 X 97/103 MG)
     Route: 065
     Dates: start: 201901
  6. METOPROLOL [Suspect]
     Active Substance: METOPROLOL
     Indication: Product used for unknown indication
     Dosage: 50 MG, QD, (1 X 50 MG)
     Route: 065
     Dates: start: 201707
  7. METOPROLOL [Suspect]
     Active Substance: METOPROLOL
     Dosage: 47.5 MG, QD, (1 X 47.5 MG)
     Route: 065
     Dates: start: 201808
  8. METOPROLOL [Suspect]
     Active Substance: METOPROLOL
     Dosage: 47.5 MG, QD, (1 X 47.5 MG)
     Route: 065
     Dates: start: 201809
  9. TORSEMIDE [Suspect]
     Active Substance: TORSEMIDE
     Indication: Product used for unknown indication
     Dosage: 10 MG, BID, (2 X 10 MG)
     Route: 065
     Dates: start: 201707
  10. TORSEMIDE [Suspect]
     Active Substance: TORSEMIDE
     Dosage: 20-10-0 MG, (DOSE WAS GENTLY INCREASED)
     Route: 065
     Dates: start: 201808
  11. TORSEMIDE [Suspect]
     Active Substance: TORSEMIDE
     Dosage: 10-10-0 MG
     Route: 065
     Dates: start: 201809
  12. ATORVASTATIN [Suspect]
     Active Substance: ATORVASTATIN
     Indication: Product used for unknown indication
     Dosage: 20 MG, QD, (1 X 20 MG)
     Route: 065
     Dates: start: 201707, end: 201910
  13. ATORVASTATIN [Suspect]
     Active Substance: ATORVASTATIN
     Dosage: 20 MG, QD, (1 X 20 MG)
     Route: 065
     Dates: start: 201808
  14. ATORVASTATIN [Suspect]
     Active Substance: ATORVASTATIN
     Dosage: 20 MG, QD, (1 X 20 MG)
     Route: 065
     Dates: start: 201809
  15. ROSUVASTATIN [Suspect]
     Active Substance: ROSUVASTATIN
     Indication: Product used for unknown indication
     Dosage: 30 MG, QD, (1 X 30 MG)
     Route: 065
     Dates: start: 201910
  16. PANTOPRAZOLE SODIUM [Suspect]
     Active Substance: PANTOPRAZOLE SODIUM
     Indication: Product used for unknown indication
     Dosage: 20 MG, QD, (1 X 20 MG)
     Route: 065
     Dates: start: 201707
  17. PANTOPRAZOLE SODIUM [Suspect]
     Active Substance: PANTOPRAZOLE SODIUM
     Dosage: 20 MG, QD, (1 X 20 MG)
     Route: 065
     Dates: start: 201809
  18. VALSARTAN [Suspect]
     Active Substance: VALSARTAN
     Indication: Product used for unknown indication
     Dosage: 60 MG, (1 X 60 MG)
     Route: 065
     Dates: start: 201707
  19. RIVAROXABAN [Suspect]
     Active Substance: RIVAROXABAN
     Indication: Product used for unknown indication
     Dosage: 20 MG, QD, (1 X 20 MG)
     Route: 065
     Dates: start: 201707, end: 201808
  20. EPLERENONE [Suspect]
     Active Substance: EPLERENONE
     Indication: Product used for unknown indication
     Dosage: 50 MG, (1 X 50 MG)
     Route: 065
     Dates: start: 201707, end: 201808
  21. EPLERENONE [Suspect]
     Active Substance: EPLERENONE
     Dosage: 50 MG, (1 X 50 MG)
     Route: 065
     Dates: start: 201809
  22. WARFARIN [Suspect]
     Active Substance: WARFARIN
     Indication: Product used for unknown indication
     Dosage: UNK, (ACCORDING TO INR)
     Route: 065
     Dates: start: 201808
  23. POTASSIUM [Suspect]
     Active Substance: POTASSIUM
     Indication: Product used for unknown indication
     Dosage: UNK
     Route: 065
     Dates: start: 201808
  24. APIXABAN [Suspect]
     Active Substance: APIXABAN
     Indication: Product used for unknown indication
     Dosage: 5 MG, BID, (2 X 5 MG)
     Route: 065
     Dates: start: 201809

REACTIONS (8)
  - Atrial fibrillation [Unknown]
  - Cardiac failure congestive [Unknown]
  - Weight increased [Unknown]
  - Oedema peripheral [Unknown]
  - Heart rate increased [Unknown]
  - Diarrhoea [Unknown]
  - Inappropriate schedule of product administration [Unknown]
  - Product dose omission issue [Unknown]

NARRATIVE: CASE EVENT DATE: 20170701
